FAERS Safety Report 6201321-2 (Version None)
Quarter: 2009Q2

REPORT INFORMATION
  Report Type: 
  Country: None (occurrence: None)
  Receive Date: 20090526
  Receipt Date: 20090515
  Transmission Date: 20091009
  Serious: Yes (Hospitalization)
  Sender: FDA-Public Use
  Company Number: PHHY2009MX18981

PATIENT
  Age: 82 Year
  Sex: Female

DRUGS (3)
  1. ACLASTA [Suspect]
     Indication: OSTEOPOROSIS
     Dosage: 5MG/100ML
     Dates: start: 20080601
  2. CALTRATE [Concomitant]
     Indication: OSTEOPOROSIS
     Dosage: 1 TABLET/DAY
  3. INSULIN [Concomitant]
     Indication: DIABETES MELLITUS
     Dosage: 40 U PER DAY

REACTIONS (3)
  - FALL [None]
  - MEDICAL DEVICE COMPLICATION [None]
  - MEDICAL DEVICE REMOVAL [None]
